FAERS Safety Report 6329842-2 (Version None)
Quarter: 2009Q3

REPORT INFORMATION
  Report Type: 
  Country: None (occurrence: None)
  Receive Date: 20090826
  Receipt Date: 20090819
  Transmission Date: 20100115
  Serious: Yes (Hospitalization, Other)
  Sender: FDA-Public Use
  Company Number: US-CELGENEUS-163-21880-09081307

PATIENT
  Sex: Female
  Weight: 54.2 kg

DRUGS (4)
  1. REVLIMID [Suspect]
     Route: 048
     Dates: start: 20090319
  2. MELPHALAN HYDROCHLORIDE [Suspect]
     Route: 048
     Dates: start: 20090319
  3. PREDNISONE TAB [Suspect]
     Route: 048
     Dates: start: 20090319
  4. ASPIRIN [Concomitant]
     Indication: DRUG USE FOR UNKNOWN INDICATION
     Route: 048
     Dates: start: 20090319

REACTIONS (4)
  - BLOOD CREATININE INCREASED [None]
  - HAEMOGLOBIN DECREASED [None]
  - HYPONATRAEMIA [None]
  - NAUSEA [None]
